FAERS Safety Report 9267432 (Version 1)
Quarter: 2013Q2

REPORT INFORMATION
  Report Type: Spontaneous
  Country: BR (occurrence: BR)
  Receive Date: 20130502
  Receipt Date: 20130502
  Transmission Date: 20140414
  Serious: Yes (Other)
  Sender: FDA-Public Use
  Company Number: BR-AMGEN-BRASP2013018343

PATIENT
  Age: 69 Year
  Sex: Female
  Weight: 80 kg

DRUGS (13)
  1. ENBREL [Suspect]
     Indication: RHEUMATOID ARTHRITIS
     Dosage: 25 MG, 2 TIMES/WK
     Route: 058
     Dates: start: 201211, end: 2013
  2. ENBREL [Suspect]
     Dosage: 25 MG, UNK
     Route: 058
     Dates: start: 2013, end: 201302
  3. ENBREL [Suspect]
     Dosage: 50 MG, QWK
     Route: 058
     Dates: start: 201302
  4. DIOVAN [Concomitant]
     Dosage: UNK
  5. GABAPENTIN [Concomitant]
     Indication: RESTLESS LEGS SYNDROME
     Dosage: 50 MG, 1X/DAY
  6. CYCLOBENZAPRINE [Concomitant]
     Dosage: UNK
  7. MELOXICAM [Concomitant]
     Dosage: UNK
  8. DEFLAZACORT [Concomitant]
     Dosage: UNK
  9. FAMOTIDINE [Concomitant]
     Dosage: UNK
  10. DIACEREIN [Concomitant]
     Dosage: UNK
  11. DIOVAN TRIPLE [Concomitant]
     Indication: BLOOD PRESSURE INCREASED
     Dosage: 160 MG, 1X/DAY
  12. PROPANOLOL                         /00030001/ [Concomitant]
     Indication: BLOOD PRESSURE INCREASED
     Dosage: UNKNOWN DOSE, 1X/DAY (AT NIGHT)
  13. OMEPRAZOLE [Concomitant]
     Indication: GASTROOESOPHAGEAL REFLUX DISEASE
     Dosage: 40 MG, 1X/DAY

REACTIONS (11)
  - Local swelling [Unknown]
  - Fall [Recovered/Resolved with Sequelae]
  - Cystitis [Recovered/Resolved]
  - Pain in extremity [Not Recovered/Not Resolved]
  - Upper limb fracture [Unknown]
  - Pneumonia [Recovered/Resolved]
  - Wrong technique in drug usage process [Unknown]
  - Pain [Unknown]
  - Arthralgia [Unknown]
  - Dysstasia [Unknown]
  - Injection site pain [Recovered/Resolved]
